FAERS Safety Report 6915413-3 (Version None)
Quarter: 2010Q3

REPORT INFORMATION
  Report Type: 
  Country: None (occurrence: None)
  Receive Date: 20100809
  Receipt Date: 20100430
  Transmission Date: 20110219
  Serious: No
  Sender: FDA-Public Use
  Company Number: US-ABBOTT-10P-163-0642661-00

PATIENT

DRUGS (2)
  1. DEPAKOTE ER [Suspect]
     Indication: BIPOLAR DISORDER
     Dates: start: 20100228, end: 20100426
  2. DEPAKOTE ER [Suspect]
     Dates: start: 20100426

REACTIONS (3)
  - CHEST DISCOMFORT [None]
  - OROPHARYNGEAL PAIN [None]
  - PRURITUS [None]
